FAERS Safety Report 17741488 (Version 5)
Quarter: 2021Q2

REPORT INFORMATION
  Report Type: Report from Study
  Country: PA (occurrence: PA)
  Receive Date: 20200504
  Receipt Date: 20210624
  Transmission Date: 20210716
  Serious: Yes (Other)
  Sender: FDA-Public Use
  Company Number: PHHY2019PA059947

PATIENT
  Age: 19 Year
  Sex: Female

DRUGS (4)
  1. GILENYA [Suspect]
     Active Substance: FINGOLIMOD HYDROCHLORIDE
     Dosage: 1 DF, QD
     Route: 048
     Dates: start: 201903
  2. GILENYA [Suspect]
     Active Substance: FINGOLIMOD HYDROCHLORIDE
     Dosage: UNK (STOPPED APPROX. ONE MONTH AND A HALF AGO)
     Route: 065
  3. GILENYA [Suspect]
     Active Substance: FINGOLIMOD HYDROCHLORIDE
     Dosage: 0.5 MG, QD
     Route: 048
     Dates: start: 20190311, end: 20210330
  4. GILENYA [Suspect]
     Active Substance: FINGOLIMOD HYDROCHLORIDE
     Indication: MULTIPLE SCLEROSIS
     Dosage: 0.5 MG, UNK
     Route: 065
     Dates: start: 201601, end: 201901

REACTIONS (22)
  - Macular oedema [Unknown]
  - Multiple sclerosis [Unknown]
  - Eye pain [Recovered/Resolved]
  - Metamorphopsia [Unknown]
  - Multiple sclerosis relapse [Not Recovered/Not Resolved]
  - Ill-defined disorder [Unknown]
  - Visual impairment [Recovered/Resolved]
  - Dizziness [Unknown]
  - Balance disorder [Recovered/Resolved]
  - Chest pain [Recovering/Resolving]
  - Astigmatism [Unknown]
  - Fatigue [Unknown]
  - Neck pain [Unknown]
  - Ocular discomfort [Recovered/Resolved]
  - Anxiety [Recovering/Resolving]
  - Multiple sclerosis relapse [Recovered/Resolved]
  - Gait disturbance [Recovered/Resolved]
  - Vertigo [Unknown]
  - Hypoaesthesia [Recovered/Resolved]
  - Feeling abnormal [Unknown]
  - Arthralgia [Unknown]
  - Exophthalmos [Not Recovered/Not Resolved]

NARRATIVE: CASE EVENT DATE: 202104
